FAERS Safety Report 10050130 (Version 1)
Quarter: 2014Q1

REPORT INFORMATION
  Report Type: Spontaneous
  Country: US (occurrence: None)
  Receive Date: 20140331
  Receipt Date: 20140331
  Transmission Date: 20141002
  Serious: Yes (Disabling)
  Sender: FDA-Public Use
  Company Number: None

PATIENT
  Age: 82 Year
  Sex: Female
  Weight: 50.8 kg

DRUGS (1)
  1. OMEPRAZOLE [Suspect]
     Dosage: 1, ONCE DAILY

REACTIONS (9)
  - Fatigue [None]
  - Syncope [None]
  - Chest pain [None]
  - Dyspnoea [None]
  - Headache [None]
  - Dizziness [None]
  - Oesophageal spasm [None]
  - Eructation [None]
  - Heart rate increased [None]
